FAERS Safety Report 16210887 (Version 1)
Quarter: 2019Q2

REPORT INFORMATION
  Report Type: Other
  Country: NO (occurrence: NO)
  Receive Date: 20190418
  Receipt Date: 20190418
  Transmission Date: 20190711
  Serious: Yes (Hospitalization)
  Sender: FDA-Public Use
  Company Number: NO-DENTSPLY-2019SCDP000240

PATIENT
  Age: 26 Year
  Sex: Female

DRUGS (1)
  1. XYLOCAINE [Suspect]
     Active Substance: LIDOCAINE HYDROCHLORIDE
     Indication: ANAESTHESIA
     Dosage: LIDOCAINE HYDROCHLORIDE 20 MILLIGRAM / ADRENALINE 12.5 MICROGRAM
     Route: 003
     Dates: start: 20190325

REACTIONS (2)
  - Chills [None]
  - Dizziness [None]

NARRATIVE: CASE EVENT DATE: 20190325
